FAERS Safety Report 26130453 (Version 1)
Quarter: 2025Q4

REPORT INFORMATION
  Report Type: Spontaneous
  Country: US (occurrence: US)
  Receive Date: 20251208
  Receipt Date: 20251208
  Transmission Date: 20260117
  Serious: No
  Sender: ALK-ABELLO
  Company Number: US-ALK-ABELLO A/S-2025AA003984

PATIENT

DRUGS (6)
  1. DERMATOPHAGOIDES FARINAE\DERMATOPHAGOIDES PTERONYSSINUS [Suspect]
     Active Substance: DERMATOPHAGOIDES FARINAE\DERMATOPHAGOIDES PTERONYSSINUS
     Indication: Product used for unknown indication
     Dosage: UNK
     Dates: start: 20250412
  2. DERMATOPHAGOIDES FARINAE\DERMATOPHAGOIDES PTERONYSSINUS [Suspect]
     Active Substance: DERMATOPHAGOIDES FARINAE\DERMATOPHAGOIDES PTERONYSSINUS
     Dosage: UNK
     Dates: start: 20250412
  3. MONTELUKAST [Concomitant]
     Active Substance: MONTELUKAST
     Indication: Product used for unknown indication
     Dosage: UNK
     Dates: end: 202505
  4. FLUTICASONE [Concomitant]
     Active Substance: FLUTICASONE
     Indication: Product used for unknown indication
     Dosage: UNK
     Dates: end: 202505
  5. ALBUTEROL [Concomitant]
     Active Substance: ALBUTEROL
     Indication: Product used for unknown indication
     Dosage: UNK
     Dates: end: 202505
  6. LEVOCETIRIZINE [Concomitant]
     Active Substance: LEVOCETIRIZINE
     Indication: Product used for unknown indication
     Dosage: UNK
     Dates: end: 202505

REACTIONS (3)
  - Urticaria [Recovered/Resolved]
  - Swelling face [Recovered/Resolved]
  - Wheezing [Recovered/Resolved]
